FAERS Safety Report 5177713-X (Version None)
Quarter: 2006Q4

REPORT INFORMATION
  Report Type: 
  Country: None (occurrence: None)
  Receive Date: 20061207
  Receipt Date: 20061127
  Transmission Date: 20070319
  Serious: Yes (Hospitalization, Other)
  Sender: FDA-Public Use
  Company Number: 2006145639

PATIENT
  Sex: Female

DRUGS (13)
  1. XANAX [Suspect]
     Indication: DRUG DEPENDENCE
  2. ZOLOFT [Suspect]
  3. PREDNISONE [Suspect]
     Indication: RHEUMATOID ARTHRITIS
  4. KLONOPIN [Suspect]
  5. OPIOIDS (OPIOIDS) [Suspect]
  6. LORCET-HD [Suspect]
  7. OXYCONTIN [Concomitant]
  8. RITALIN [Concomitant]
  9. ADDERALL 10 [Concomitant]
  10. PROZAC [Concomitant]
  11. SERZONE [Concomitant]
  12. FOSAMAX [Concomitant]
  13. CELEBREX [Concomitant]

REACTIONS (7)
  - ANKLE FRACTURE [None]
  - DRUG ABUSER [None]
  - DRUG DEPENDENCE [None]
  - FALL [None]
  - INTENTIONAL DRUG MISUSE [None]
  - RHEUMATOID ARTHRITIS [None]
  - UPPER LIMB FRACTURE [None]
